FAERS Safety Report 8909641 (Version 2)
Quarter: 2013Q2

REPORT INFORMATION
  Report Type: Spontaneous
  Country: FR (occurrence: FR)
  Receive Date: 20121115
  Receipt Date: 20130528
  Transmission Date: 20140414
  Serious: Yes (Other)
  Sender: FDA-Public Use
  Company Number: FR-ASTRAZENECA-2012SE85815

PATIENT
  Age: 73 Year
  Sex: Female

DRUGS (3)
  1. CRESTOR [Suspect]
     Indication: DYSLIPIDAEMIA
     Route: 048
     Dates: start: 20100323, end: 201105
  2. RASILEZ [Concomitant]
     Indication: HYPERTENSION
     Dates: start: 201002, end: 20100719
  3. FLUOXETINE [Concomitant]
     Indication: DEPRESSION
     Dates: start: 201008, end: 201009

REACTIONS (3)
  - Decreased appetite [Recovered/Resolved]
  - Weight decreased [Recovered/Resolved]
  - Asthenia [Recovered/Resolved]
